FAERS Safety Report 18468133 (Version 3)
Quarter: 2021Q2

REPORT INFORMATION
  Report Type: Report from Study
  Country: CO (occurrence: CO)
  Receive Date: 20201105
  Receipt Date: 20210401
  Transmission Date: 20210717
  Serious: Yes (Hospitalization, Other)
  Sender: FDA-Public Use
  Company Number: CO-BRISTOL-MYERS SQUIBB COMPANY-BMS-2020-091488

PATIENT
  Age: 61 Year
  Sex: Male

DRUGS (1)
  1. NIVOLUMAB [Suspect]
     Active Substance: NIVOLUMAB
     Indication: MALIGNANT MELANOMA
     Dosage: 400 MILLIGRAM, Q4WK
     Route: 042
     Dates: start: 20200208, end: 20210308

REACTIONS (4)
  - Metastases to kidney [Recovering/Resolving]
  - Off label use [Unknown]
  - Renal disorder [Recovering/Resolving]
  - Dengue fever [Unknown]

NARRATIVE: CASE EVENT DATE: 20201022
